FAERS Safety Report 13243067 (Version 2)
Quarter: 2017Q1

REPORT INFORMATION
  Report Type: Spontaneous
  Country: KR (occurrence: KR)
  Receive Date: 20170216
  Receipt Date: 20170223
  Transmission Date: 20170428
  Serious: Yes (Death, Other)
  Sender: FDA-Public Use
  Company Number: KR-009507513-1702KOR006061

PATIENT
  Age: 72 Year
  Sex: Male
  Weight: 63.2 kg

DRUGS (11)
  1. EMEND (FOSAPREPITANT DIMEGLUMINE) [Suspect]
     Active Substance: FOSAPREPITANT DIMEGLUMINE
     Dosage: 150 MG, ONCE
     Route: 042
     Dates: start: 20161226, end: 20161226
  2. EMEND (FOSAPREPITANT DIMEGLUMINE) [Suspect]
     Active Substance: FOSAPREPITANT DIMEGLUMINE
     Dosage: 150 MG, ONCE
     Route: 042
     Dates: start: 20161108, end: 20161108
  3. EMEND (FOSAPREPITANT DIMEGLUMINE) [Suspect]
     Active Substance: FOSAPREPITANT DIMEGLUMINE
     Dosage: 150 MG, ONCE
     Route: 042
     Dates: start: 20161122, end: 20161122
  4. EMEND (FOSAPREPITANT DIMEGLUMINE) [Suspect]
     Active Substance: FOSAPREPITANT DIMEGLUMINE
     Dosage: 150 MG, ONCE
     Route: 042
     Dates: start: 20170124, end: 20170124
  5. OXAPLA [Concomitant]
     Indication: RECTAL CANCER
     Dosage: 147 MG, FREQUENCY: 1, CYCLE: 1
     Route: 042
     Dates: start: 20161025, end: 20161025
  6. 5-FUCHOONGWAE [Concomitant]
     Indication: RECTAL CANCER
     Dosage: STRENGTH: 1000MG/20ML, CYCLE: 1, 4844MG, FREQUENCY: 1
     Route: 042
     Dates: start: 20161025, end: 20161025
  7. EMEND (FOSAPREPITANT DIMEGLUMINE) [Suspect]
     Active Substance: FOSAPREPITANT DIMEGLUMINE
     Indication: PROPHYLAXIS OF NAUSEA AND VOMITING
     Dosage: 150 MG, ONCE
     Route: 042
     Dates: start: 20161025, end: 20161025
  8. EMEND (FOSAPREPITANT DIMEGLUMINE) [Suspect]
     Active Substance: FOSAPREPITANT DIMEGLUMINE
     Dosage: 150 MG, ONCE
     Route: 042
     Dates: start: 20161206, end: 20161206
  9. HUMEDIX DEXAMETHASONE NA PHOSPHATE [Concomitant]
     Indication: PROPHYLAXIS OF NAUSEA AND VOMITING
     Dosage: 5 MG, FREQUENCY: 1
     Route: 042
     Dates: start: 20161025, end: 20161025
  10. ALOXI [Concomitant]
     Active Substance: PALONOSETRON HYDROCHLORIDE
     Indication: PROPHYLAXIS OF NAUSEA AND VOMITING
     Dosage: 0.25MG, FREQUENCY: 1
     Route: 042
     Dates: start: 20161025, end: 20161025
  11. MEGACE [Concomitant]
     Active Substance: MEGESTROL ACETATE
     Indication: DECREASED APPETITE
     Dosage: 20 ML, FREQUENCY. 2
     Route: 048
     Dates: start: 2016, end: 20170125

REACTIONS (4)
  - Decreased appetite [Recovered/Resolved]
  - Nausea [Recovered/Resolved]
  - Acute respiratory failure [Fatal]
  - Lethargy [Recovered/Resolved]

NARRATIVE: CASE EVENT DATE: 20161026
